FAERS Safety Report 23284658 (Version 1)
Quarter: 2023Q4

REPORT INFORMATION
  Report Type: Spontaneous
  Country: PR (occurrence: PR)
  Receive Date: 20231211
  Receipt Date: 20231211
  Transmission Date: 20240110
  Serious: Yes (Hospitalization, Other)
  Sender: FDA-Public Use
  Company Number: PR-BRISTOL-MYERS SQUIBB COMPANY-2023-175475

PATIENT
  Age: 80 Year
  Sex: Male
  Weight: 81.65 kg

DRUGS (1)
  1. REVLIMID [Suspect]
     Active Substance: LENALIDOMIDE
     Indication: Plasma cell myeloma
     Dosage: TAKE ONE CAPSULE DAILY FOR 21 DAYS, REST FOR A WEEK. 28 DAY CYCLE
     Route: 048
     Dates: start: 20230308

REACTIONS (5)
  - Depression [Recovered/Resolved]
  - Mycoplasma test positive [Recovered/Resolved]
  - Pyrexia [Recovered/Resolved]
  - Cardiac disorder [Recovered/Resolved]
  - Electric shock [Recovered/Resolved]

NARRATIVE: CASE EVENT DATE: 20231118
